FAERS Safety Report 24642929 (Version 1)
Quarter: 2024Q4

REPORT INFORMATION
  Report Type: Spontaneous
  Country: DE (occurrence: DE)
  Receive Date: 20241120
  Receipt Date: 20241120
  Transmission Date: 20250115
  Serious: Yes (Other)
  Sender: ALEXION PHARMACEUTICALS
  Company Number: DE-ASTRAZENECA-202411EEA009572DE

PATIENT
  Weight: 64 kg

DRUGS (1)
  1. CALQUENCE [Suspect]
     Active Substance: ACALABRUTINIB
     Dosage: UNK

REACTIONS (5)
  - Hepatic neoplasm [Unknown]
  - Bicytopenia [Unknown]
  - Arthralgia [Unknown]
  - Myalgia [Unknown]
  - Rash [Unknown]
